FAERS Safety Report 24824199 (Version 1)
Quarter: 2025Q1

REPORT INFORMATION
  Report Type: Spontaneous
  Country: US (occurrence: US)
  Receive Date: 20250109
  Receipt Date: 20250109
  Transmission Date: 20250408
  Serious: Yes (Hospitalization, Other)
  Sender: RANBAXY
  Company Number: US-SUN PHARMACEUTICAL INDUSTRIES LTD-2024R1-488139

PATIENT
  Age: 40 Year
  Sex: Male

DRUGS (2)
  1. DOXYCYCLINE [Suspect]
     Active Substance: DOXYCYCLINE
     Indication: Panniculitis
     Route: 065
  2. BETAMETHASONE [Suspect]
     Active Substance: BETAMETHASONE
     Indication: Panniculitis
     Route: 061

REACTIONS (1)
  - Condition aggravated [Unknown]
